FAERS Safety Report 12005564 (Version 2)
Quarter: 2016Q1

REPORT INFORMATION
  Report Type: Report from Study
  Country: CA (occurrence: CA)
  Receive Date: 20160204
  Receipt Date: 20160308
  Transmission Date: 20160526
  Serious: Yes (Hospitalization)
  Sender: FDA-Public Use
  Company Number: CA-JNJFOC-20160200666

PATIENT
  Age: 46 Year
  Sex: Male
  Weight: 81 kg

DRUGS (1)
  1. REMICADE [Suspect]
     Active Substance: INFLIXIMAB
     Indication: COLITIS ULCERATIVE
     Dosage: 52 WEEKS
     Route: 042
     Dates: start: 20130219

REACTIONS (6)
  - Infection [Unknown]
  - Product use issue [Unknown]
  - Off label use [Unknown]
  - Malaise [Unknown]
  - Rectal abscess [Unknown]
  - Surgery [Unknown]

NARRATIVE: CASE EVENT DATE: 20130219
